FAERS Safety Report 19291982 (Version 1)
Quarter: 2021Q2

REPORT INFORMATION
  Report Type: Spontaneous
  Country: US (occurrence: US)
  Receive Date: 20210524
  Receipt Date: 20210524
  Transmission Date: 20210717
  Serious: No
  Sender: FDA-Public Use
  Company Number: US-LEADINGPHARMA-US-2021LEASPO00163

PATIENT
  Age: 33 Year
  Sex: Female
  Weight: 104 kg

DRUGS (3)
  1. FOLIC ACID TABLETS USP [Suspect]
     Active Substance: FOLIC ACID
     Route: 048
     Dates: start: 20210421
  2. MULTIVITAMINS [VITAMINS NOS] [Concomitant]
     Active Substance: VITAMINS
     Route: 065
  3. FOLIC ACID TABLETS USP [Suspect]
     Active Substance: FOLIC ACID
     Indication: SUPPLEMENTATION THERAPY
     Route: 048
     Dates: start: 20210311

REACTIONS (1)
  - Skin reaction [Not Recovered/Not Resolved]

NARRATIVE: CASE EVENT DATE: 202103
